FAERS Safety Report 4617545-1 (Version None)
Quarter: 2005Q1

REPORT INFORMATION
  Report Type: 
  Country: None (occurrence: None)
  Receive Date: 20050315
  Receipt Date: 20050228
  Transmission Date: 20050727
  Serious: Yes (Other)
  Sender: FDA-Public Use
  Company Number: 601713

PATIENT
  Age: 22 Year
  Sex: Male

DRUGS (3)
  1. PROTHROMPLEX S-TIM4  (HUMAN PARTIAL PROTHROMBIN COMPLEX FREEZE-DRIED) [Suspect]
     Dosage: 500 IU; ONCE; INTRAVENOUS
     Route: 042
     Dates: start: 20040926, end: 20040926
  2. ALBUMIN (HUMAN) [Suspect]
     Dosage: PRN; INTRAVENOUS
     Dates: start: 20040926, end: 20040929
  3. ANTITHROMBIN III (ANTITHROMBIN III) [Suspect]
     Dosage: 50 IU; PRN; INTRAVENOUS
     Dates: start: 20040926, end: 20040926

REACTIONS (1)
  - HEPATITIS C [None]
